FAERS Safety Report 6154309-4 (Version None)
Quarter: 2009Q2

REPORT INFORMATION
  Report Type: 
  Country: None (occurrence: None)
  Receive Date: 20090414
  Receipt Date: 20090409
  Transmission Date: 20091009
  Serious: Yes (Hospitalization)
  Sender: FDA-Public Use
  Company Number: US-KINGPHARMUSA00001-K200900409

PATIENT
  Age: 82 Year
  Sex: Male

DRUGS (8)
  1. ALTACE [Suspect]
     Dosage: 5 MG, QD
     Route: 048
     Dates: end: 20090329
  2. COD LIVER OIL [Concomitant]
     Dosage: UNK
  3. DIAFORMIN [Concomitant]
     Dosage: UNK
  4. CHOLSTAT                           /01341301/ [Concomitant]
     Dosage: UNK
  5. MELOXICAM [Concomitant]
     Dosage: UNK
  6. ACIMAX                             /00661201/ [Concomitant]
     Dosage: UNK
  7. ASPIRIN [Concomitant]
  8. FERRIC SULFATE [Concomitant]

REACTIONS (2)
  - ASTHENIA [None]
  - GASTROINTESTINAL HAEMORRHAGE [None]
